FAERS Safety Report 6268368-1 (Version None)
Quarter: 2009Q3

REPORT INFORMATION
  Report Type: 
  Country: None (occurrence: None)
  Receive Date: 20090713
  Receipt Date: 20090713
  Transmission Date: 20100115
  Serious: Yes (Hospitalization)
  Sender: FDA-Public Use
  Company Number: None

PATIENT
  Age: 62 Year
  Sex: Male
  Weight: 81.7835 kg

DRUGS (9)
  1. GEMCITABINE [Suspect]
     Indication: PANCREATIC CARCINOMA
     Dosage: 1000MG/M2 D1, D15 IV DRIP
     Route: 041
     Dates: start: 20071227, end: 20081112
  2. BEVACIZUMAB 25MG/ML GENENTECH [Suspect]
     Indication: PANCREATIC CARCINOMA
     Dosage: 10MG/KG D1, D15 IV DRIP
     Route: 041
     Dates: start: 20070220, end: 20081015
  3. AMLODEPINE [Concomitant]
  4. HYDRALAZINE HCL [Concomitant]
  5. CLONIDINE [Concomitant]
  6. LEVOTHYROXINE SODIUM [Concomitant]
  7. FUROSENIDE [Concomitant]
  8. ENOXAPARIN SODIUM [Concomitant]
  9. SKELAXIN [Concomitant]

REACTIONS (11)
  - BACK PAIN [None]
  - CARDIAC FAILURE CONGESTIVE [None]
  - HAEMOGLOBIN DECREASED [None]
  - HYPERTENSION [None]
  - METASTASIS [None]
  - MUSCLE SPASMS [None]
  - NAUSEA [None]
  - OSTEOARTHRITIS [None]
  - PATHOLOGICAL FRACTURE [None]
  - RENAL FAILURE ACUTE [None]
  - VOMITING [None]
